FAERS Safety Report 7994995-7 (Version None)
Quarter: 2011Q4

REPORT INFORMATION
  Report Type: 
  Country: None (occurrence: None)
  Receive Date: 20111220
  Receipt Date: 20111128
  Transmission Date: 20120403
  Serious: No
  Sender: FDA-Public Use
  Company Number: US-MYLANLABS-2011S1021472

PATIENT
  Age: 78 Year
  Sex: Female

DRUGS (4)
  1. NORVASC [Concomitant]
     Route: 048
  2. WELCHOL [Concomitant]
     Route: 048
  3. COSOPT [Concomitant]
     Route: 047
  4. LATANOPROST [Suspect]
     Indication: GLAUCOMA
     Route: 047
     Dates: start: 20111011, end: 20111013

REACTIONS (4)
  - HEADACHE [None]
  - VISION BLURRED [None]
  - DIZZINESS [None]
  - OVERDOSE [None]
